FAERS Safety Report 23576440 (Version 1)
Quarter: 2024Q1

REPORT INFORMATION
  Report Type: Spontaneous
  Country: US (occurrence: US)
  Receive Date: 20240228
  Receipt Date: 20240228
  Transmission Date: 20240409
  Serious: No
  Sender: FDA-Public Use
  Company Number: US-UPSHER-SMITH LABORATORIES, LLC-2023USL00377

PATIENT
  Age: 35 Year
  Sex: Male

DRUGS (2)
  1. MYORISAN [Suspect]
     Active Substance: ISOTRETINOIN
     Indication: Acne cystic
     Dosage: 40 MG, 1X/DAY
     Route: 048
     Dates: start: 20230123, end: 20230208
  2. PROPECIA [Concomitant]
     Active Substance: FINASTERIDE
     Dosage: 1 MG, 1X/DAY

REACTIONS (2)
  - Vision blurred [Recovered/Resolved]
  - Inappropriate schedule of product administration [Recovered/Resolved]

NARRATIVE: CASE EVENT DATE: 20230123
